FAERS Safety Report 20933001 (Version 1)
Quarter: 2022Q2

REPORT INFORMATION
  Report Type: Spontaneous
  Country: US (occurrence: US)
  Receive Date: 20220608
  Receipt Date: 20220608
  Transmission Date: 20220721
  Serious: Yes (Other)
  Sender: FDA-Public Use
  Company Number: US-REGENERON PHARMACEUTICALS, INC.-2022-31152

PATIENT
  Sex: Female

DRUGS (2)
  1. EYLEA [Suspect]
     Active Substance: AFLIBERCEPT
     Indication: Age-related macular degeneration
     Dosage: UNK, IN BOTH EYES
     Route: 031
     Dates: start: 202005
  2. EYLEA [Suspect]
     Active Substance: AFLIBERCEPT
     Dosage: UNK, IN BOTH EYES
     Route: 031
     Dates: start: 20220211, end: 20220211

REACTIONS (2)
  - Endophthalmitis [Not Recovered/Not Resolved]
  - Visual impairment [Not Recovered/Not Resolved]

NARRATIVE: CASE EVENT DATE: 20220215
